FAERS Safety Report 8800629 (Version 2)
Quarter: 2012Q4

REPORT INFORMATION
  Report Type: 
  Country: CH (occurrence: CH)
  Receive Date: 20120921
  Receipt Date: 20120928
  Transmission Date: 20130627
  Serious: Yes (Life-Threatening, Hospitalization)
  Sender: FDA-Public Use
  Company Number: CH-ELI_LILLY_AND_COMPANY-CH201209004791

PATIENT
  Age: 62 Year
  Sex: Male
  Weight: 83 kg

DRUGS (7)
  1. EFIENT [Suspect]
     Indication: STENT PLACEMENT
     Dosage: 60 mg, single
     Route: 065
  2. EFIENT [Suspect]
     Dosage: 10 mg, qd
     Route: 065
  3. ASPIRIN [Concomitant]
     Dosage: UNK, unknown
     Route: 065
  4. PRAVALOTIN [Concomitant]
  5. BLOPRESS PLUS [Concomitant]
  6. ORAL ANTIDIABETICS [Concomitant]
  7. INSULIN [Concomitant]

REACTIONS (2)
  - Cardiogenic shock [Recovered/Resolved]
  - Acute myocardial infarction [Recovered/Resolved]
